FAERS Safety Report 16542369 (Version 2)
Quarter: 2019Q3

REPORT INFORMATION
  Report Type: Report from Study
  Country: None (occurrence: DE)
  Receive Date: 20190708
  Receipt Date: 20190719
  Transmission Date: 20191004
  Serious: Yes (Other)
  Sender: FDA-Public Use
  Company Number: DE-ABBVIE-19K-062-2845046-00

PATIENT
  Age: 54 Year
  Sex: Female
  Weight: 85 kg

DRUGS (6)
  1. CLINDAMYCIN. [Concomitant]
     Active Substance: CLINDAMYCIN
     Indication: HIDRADENITIS
  2. ENANTHATE [Concomitant]
     Active Substance: TESTOSTERONE ENANTHATE
     Indication: HIDRADENITIS
  3. CLINDAMYCIN. [Concomitant]
     Active Substance: CLINDAMYCIN
     Indication: HIDRADENITIS
     Route: 048
     Dates: start: 20180601, end: 20180901
  4. IBUPROFEN. [Concomitant]
     Active Substance: IBUPROFEN
     Indication: PRODUCT USED FOR UNKNOWN INDICATION
     Route: 048
  5. ENANTHATE [Concomitant]
     Active Substance: TESTOSTERONE ENANTHATE
     Indication: HIDRADENITIS
     Route: 048
     Dates: start: 20180601, end: 20180901
  6. HUMIRA [Suspect]
     Active Substance: ADALIMUMAB
     Indication: HIDRADENITIS
     Route: 058
     Dates: start: 201808

REACTIONS (3)
  - Meniere^s disease [Not Recovered/Not Resolved]
  - Sudden hearing loss [Recovering/Resolving]
  - Altered pitch perception [Not Recovered/Not Resolved]

NARRATIVE: CASE EVENT DATE: 201906
